FAERS Safety Report 17353645 (Version 2)
Quarter: 2020Q1

REPORT INFORMATION
  Report Type: Report from Study
  Country: None (occurrence: US)
  Receive Date: 20200131
  Receipt Date: 20200305
  Transmission Date: 20200409
  Serious: Yes (Hospitalization)
  Sender: FDA-Public Use
  Company Number: US-ABBVIE-20K-163-3255743-00

PATIENT
  Sex: Female

DRUGS (1)
  1. HUMIRA [Suspect]
     Active Substance: ADALIMUMAB
     Indication: RHEUMATOID ARTHRITIS
     Dosage: HUMIRA CITRATE FREE
     Route: 058

REACTIONS (5)
  - Hypertension [Recovering/Resolving]
  - Anxiety [Recovering/Resolving]
  - Parosmia [Unknown]
  - Migraine [Recovered/Resolved]
  - Transient ischaemic attack [Recovering/Resolving]
